FAERS Safety Report 10220767 (Version 1)
Quarter: 2014Q2

REPORT INFORMATION
  Report Type: Spontaneous
  Country: ES (occurrence: None)
  Receive Date: 20140604
  Receipt Date: 20140604
  Transmission Date: 20141212
  Serious: Yes (Hospitalization)
  Sender: FDA-Public Use
  Company Number: 2014AP003215

PATIENT
  Age: 79 Year
  Sex: Female

DRUGS (6)
  1. ENALAPRIL\HYDROCHLOROTHIAZIDE [Suspect]
     Indication: HYPERTENSION
     Route: 048
     Dates: start: 201211, end: 20130821
  2. FUROSEMIDE [Suspect]
     Indication: HYPERTENSION
     Route: 048
     Dates: start: 20130719, end: 20130821
  3. METFORMIN (METFORMIN) [Concomitant]
  4. GLICLADA (GLICLAZIDE) [Concomitant]
  5. INSULATARD (INSULIN HUMAN INJECTION, ISOPHANE) [Concomitant]
  6. SIMVASTATINA (SIMVASTATIN) [Concomitant]

REACTIONS (2)
  - Hyperkalaemia [None]
  - Renal failure acute [None]
